FAERS Safety Report 21756276 (Version 1)
Quarter: 2022Q4

REPORT INFORMATION
  Report Type: Spontaneous
  Country: FR (occurrence: FR)
  Receive Date: 20221220
  Receipt Date: 20221220
  Transmission Date: 20230112
  Serious: No
  Sender: FDA-Public Use
  Company Number: FR-JAZZ-2022-FR-017142

PATIENT

DRUGS (7)
  1. ZEPZELCA [Suspect]
     Active Substance: LURBINECTEDIN
     Indication: Small cell lung cancer
     Dosage: 5.1 MILLIGRAM
     Dates: start: 20211130
  2. ZEPZELCA [Suspect]
     Active Substance: LURBINECTEDIN
     Dosage: 5.1 MILLIGRAM
     Dates: start: 20211221
  3. ZEPZELCA [Suspect]
     Active Substance: LURBINECTEDIN
     Dosage: 5.1 MILLIGRAM
     Dates: start: 20220112
  4. ZEPZELCA [Suspect]
     Active Substance: LURBINECTEDIN
     Dosage: 5.1 MILLIGRAM
     Dates: start: 20220202
  5. ZEPZELCA [Suspect]
     Active Substance: LURBINECTEDIN
     Dosage: 5 MILLIGRAM
     Dates: start: 20220223
  6. ZEPZELCA [Suspect]
     Active Substance: LURBINECTEDIN
     Dosage: 4 MILLIGRAM
     Dates: start: 20220304
  7. ZEPZELCA [Suspect]
     Active Substance: LURBINECTEDIN
     Dosage: 4 MILLIGRAM
     Dates: start: 20220324, end: 20220616

REACTIONS (2)
  - Asthenia [Unknown]
  - Anaemia [Unknown]
